FAERS Safety Report 9095452 (Version 2)
Quarter: 2013Q3

REPORT INFORMATION
  Report Type: Spontaneous
  Country: US (occurrence: None)
  Receive Date: 20130123
  Receipt Date: 20130715
  Transmission Date: 20140515
  Serious: Yes (Hospitalization, Other)
  Sender: FDA-Public Use
  Company Number: 2013-000220

PATIENT
  Age: 75 Year
  Sex: Female

DRUGS (17)
  1. ACTONEL (RISEDRONATE SODIUM) TABLET, UNKMG [Suspect]
     Indication: OSTEOPENIA
     Route: 048
     Dates: start: 2008, end: 200908
  2. ACTONEL (RISEDRONATE SODIUM) TABLET, 35MG [Suspect]
     Route: 048
     Dates: start: 2005, end: 2007
  3. FOSAMAX (ALENDRONATE SODIUM) [Suspect]
     Dates: start: 20090312, end: 200910
  4. TOPROL (METOPROLOL SUCCINATE) [Concomitant]
  5. HYDROCHLOROTHIAZIDE W/TRIAMTERENE (HYDROCHLOROTHIAZIDE, TRIAMTERENE) [Concomitant]
  6. LISINOPRIL (LISINOPRIL) [Concomitant]
  7. ASPIRIN (ACETYLSALICYLIC ACID) [Concomitant]
  8. LIPITOR (ATORVASTATIN CALCIUM0 [Concomitant]
  9. PRAVASTATIN (PRAVASTATIN) [Concomitant]
  10. TRAMADOL (TRAMADOL) [Concomitant]
  11. MOBIC (MELOXICAM) [Concomitant]
  12. OMEPRAZOLE (OMEPRAZOLE) [Concomitant]
  13. NEXIUM (ESOMEPRAZOLE MAGNESIUM) [Concomitant]
  14. CO-ENZYME Q10 (UBIDECARENONE) [Concomitant]
  15. MULTIVITAMIN/00097801/ (ASCORBIC ACID, CALCIUM PANTOTHENATE, ERGOCALCIFE NICOTINAMIDE, PYRIDOXINE HYDROCHLORIDE, RETINOL, RIBOFLAVIN, THIAMINE HYDROCHLORIDE) [Concomitant]
  16. VITAMIN B-COMPLEX/06817001/ (VITAMIN B COMPLEX) [Concomitant]
  17. CALCIUM PLUS VITAMIN D (CALCIUM, COLECALCIFEROL) [Concomitant]

REACTIONS (6)
  - Fall [None]
  - Atypical femur fracture [None]
  - Stress fracture [None]
  - Fracture delayed union [None]
  - Pain [None]
  - Fracture displacement [None]
